FAERS Safety Report 9566721 (Version 1)
Quarter: 2013Q3

REPORT INFORMATION
  Report Type: Spontaneous
  Country: US (occurrence: US)
  Receive Date: 20130930
  Receipt Date: 20130930
  Transmission Date: 20140515
  Serious: No
  Sender: FDA-Public Use
  Company Number: US-AMGEN-USASP2012062968

PATIENT
  Sex: Male
  Weight: 112.93 kg

DRUGS (9)
  1. ENBREL [Suspect]
     Indication: PRODUCT USED FOR UNKNOWN INDICATION
     Dosage: UNK
  2. LEVETIRACETAM [Concomitant]
     Dosage: 500 MG, UNK
  3. METHOTREXATE [Concomitant]
     Dosage: 2.5 MG, UNK
  4. HYDROCHLOROTH [Concomitant]
     Dosage: 12.5 MG, UNK
  5. PREDNISONE [Concomitant]
     Dosage: 5 MG, UNK
  6. FOLIC ACID [Concomitant]
     Dosage: 1 MG, UNK
  7. GINGER                             /01646602/ [Concomitant]
     Dosage: 500 MG, UNK
  8. FISH OIL [Concomitant]
  9. CALCIUM 600 [Concomitant]
     Dosage: UNK

REACTIONS (9)
  - Arthralgia [Unknown]
  - Injection site haemorrhage [Unknown]
  - Tooth fracture [Unknown]
  - Tooth disorder [Unknown]
  - Feeling hot [Recovered/Resolved]
  - Paraesthesia [Recovered/Resolved]
  - Balance disorder [Recovered/Resolved]
  - Tremor [Recovered/Resolved]
  - Dental caries [Unknown]
